FAERS Safety Report 4592558-7 (Version None)
Quarter: 2005Q1

REPORT INFORMATION
  Report Type: 
  Country: None (occurrence: None)
  Receive Date: 20050228
  Receipt Date: 20040202
  Transmission Date: 20050727
  Serious: Yes (Death, Life-Threatening)
  Sender: FDA-Public Use
  Company Number: 200410216JP

PATIENT
  Age: 71 Year
  Sex: Female
  Weight: 53 kg

DRUGS (13)
  1. ARAVA [Suspect]
     Indication: RHEUMATOID ARTHRITIS
     Route: 048
     Dates: start: 20030925, end: 20040128
  2. GASTER [Concomitant]
     Indication: GASTRITIS
     Route: 048
     Dates: start: 20020902, end: 20040204
  3. MOBIC [Concomitant]
     Indication: ARTHRITIS
     Route: 048
     Dates: start: 20020902, end: 20040204
  4. DIOVAN [Concomitant]
     Indication: HYPERTENSION
     Route: 048
     Dates: start: 20021106, end: 20040204
  5. PREDONINE [Concomitant]
     Indication: ARTHRITIS
     Route: 048
     Dates: start: 20021225, end: 20040202
  6. BREDININ [Concomitant]
     Indication: ARTHRITIS
     Route: 048
     Dates: start: 20021106, end: 20030901
  7. RHEUMATREX [Concomitant]
     Indication: ARTHRITIS
     Dosage: DOSE: 4MG/WEEK
     Route: 048
     Dates: start: 20030319, end: 20030924
  8. FOLIAMIN [Concomitant]
     Indication: STOMATITIS
     Dosage: DOSE: 10MG/WEEK
     Route: 048
     Dates: start: 20030331, end: 20030924
  9. SHIOSOL [Concomitant]
     Indication: ARTHRITIS
     Dosage: DOSE: 10MG/WEEK
     Route: 030
     Dates: start: 20031217, end: 20040128
  10. PL GRAN. [Concomitant]
     Indication: NASOPHARYNGITIS
     Route: 048
     Dates: start: 20031119, end: 20031123
  11. MEDICON [Concomitant]
     Indication: NASOPHARYNGITIS
     Route: 048
     Dates: start: 20031119, end: 20031123
  12. ALLELOCK [Concomitant]
     Indication: NASOPHARYNGITIS
     Route: 048
     Dates: start: 20031119, end: 20031123
  13. CLARICID [Concomitant]
     Indication: NASOPHARYNGITIS
     Route: 048
     Dates: start: 20031119, end: 20031128

REACTIONS (14)
  - BLOOD POTASSIUM INCREASED [None]
  - DEPRESSED LEVEL OF CONSCIOUSNESS [None]
  - DISSEMINATED INTRAVASCULAR COAGULATION [None]
  - HAEMORRHAGIC DIATHESIS [None]
  - INAPPROPRIATE ANTIDIURETIC HORMONE SECRETION [None]
  - INTERSTITIAL LUNG DISEASE [None]
  - LIVER DISORDER [None]
  - MELAENA [None]
  - PLATELET COUNT DECREASED [None]
  - PNEUMOCYSTIS JIROVECI PNEUMONIA [None]
  - PNEUMONIA STAPHYLOCOCCAL [None]
  - PNEUMOTHORAX [None]
  - PROTHROMBIN LEVEL DECREASED [None]
  - URINE OUTPUT DECREASED [None]
